FAERS Safety Report 15478225 (Version 1)
Quarter: 2018Q4

REPORT INFORMATION
  Report Type: Spontaneous
  Country: US (occurrence: US)
  Receive Date: 20181002
  Receipt Date: 20181002
  Transmission Date: 20190205
  Serious: Yes (Hospitalization)
  Sender: FDA-Public Use
  Company Number: None

PATIENT
  Age: 20 Year
  Sex: Female

DRUGS (14)
  1. MYCOPHENOLATE [Suspect]
     Active Substance: MYCOPHENOLIC ACID
     Indication: RENAL TRANSPLANT
     Route: 048
     Dates: start: 20180920
  2. RANITIDINE. [Concomitant]
     Active Substance: RANITIDINE
  3. VITAMIN E [Concomitant]
     Active Substance: .ALPHA.-TOCOPHEROL
  4. ATOVAQUONE. [Concomitant]
     Active Substance: ATOVAQUONE
  5. PREDNISONE. [Concomitant]
     Active Substance: PREDNISONE
  6. TACROLIMUS. [Suspect]
     Active Substance: TACROLIMUS
     Indication: RENAL TRANSPLANT
     Route: 048
     Dates: start: 20180509
  7. NYSTATIN. [Concomitant]
     Active Substance: NYSTATIN
  8. FERROUS SULF [Concomitant]
     Active Substance: FERROUS SULFATE
  9. COENZYME [Concomitant]
     Active Substance: UBIDECARENONE
  10. ARANESP [Concomitant]
     Active Substance: DARBEPOETIN ALFA
  11. AMOXICILLIN. [Concomitant]
     Active Substance: AMOXICILLIN
  12. LEVOCARNITIN [Concomitant]
  13. METOPROLOL TAR [Concomitant]
     Active Substance: METOPROLOL TARTRATE
  14. ZOFRAN [Concomitant]
     Active Substance: ONDANSETRON HYDROCHLORIDE

REACTIONS (1)
  - Pyrexia [None]

NARRATIVE: CASE EVENT DATE: 20181001
